FAERS Safety Report 10575073 (Version 5)
Quarter: 2015Q2

REPORT INFORMATION
  Report Type: Spontaneous
  Country: JP (occurrence: JP)
  Receive Date: 20141111
  Receipt Date: 20150522
  Transmission Date: 20150821
  Serious: No
  Sender: FDA-Public Use
  Company Number: JP-009507513-1411JPN002705

PATIENT
  Age: 75 Year
  Sex: Female
  Weight: 55 kg

DRUGS (7)
  1. RABEPRAZOLE SODIUM. [Concomitant]
     Active Substance: RABEPRAZOLE SODIUM
     Indication: GASTROOESOPHAGEAL REFLUX DISEASE
     Dosage: DOSE: 10 MG, DIVIDED DOSE, FREQUENCY: UNKNOWN, TOTAL DAILY DOSE: 10 MG
     Route: 048
     Dates: start: 20060724
  2. MAGNESIUM OXIDE. [Concomitant]
     Active Substance: MAGNESIUM OXIDE
     Indication: CONSTIPATION
     Dosage: 1-3 G A DAY, DIVIDED DOSE, FREQUENCY: UNKNOWN, DAILY DOSE: UNKNOWN
     Route: 048
     Dates: start: 20120725
  3. GASLON [Concomitant]
     Active Substance: IRSOGLADINE MALEATE
     Indication: CHRONIC GASTRITIS
     Dosage: DOSE: 4 MG, DIVIDED DOSE, FREQUENCY: UNKNOWN, TOTAL DAILY DOSE: 4 MG
     Route: 048
     Dates: start: 20061121
  4. SENNA [Concomitant]
     Active Substance: SENNA LEAF\SENNOSIDES\SENNOSIDES A AND B
     Indication: CONSTIPATION
     Dosage: DOSE: 0.5-2 G A DAY, DIVIDED DOSE, FREQUENCY: UNKNOWN, TOTAL DAILY DOSE: UNKNOWN
     Route: 048
     Dates: start: 20120725
  5. LIPITOR [Concomitant]
     Active Substance: ATORVASTATIN CALCIUM
     Indication: HYPERCHOLESTEROLAEMIA
     Dosage: DOSE: 10 MG, DIVIDED DOSE, FREQUENCY: UNKNOWN, TOTAL DAILY DOSE: 10 MG
     Route: 048
     Dates: start: 20081126
  6. MICARDIS [Concomitant]
     Active Substance: TELMISARTAN
     Indication: HYPERTENSION
     Dosage: DOSE: 40 MG, DIVIDED DOSE, FREQUENCY: UNKNOWN, TOTAL DAILY DOSE: 40 MG
     Route: 048
     Dates: start: 20050411
  7. ZETIA [Suspect]
     Active Substance: EZETIMIBE
     Indication: HYPERCHOLESTEROLAEMIA
     Dosage: 10 MG, ONCE A DAY (IN THE MORNING)
     Route: 048
     Dates: start: 20140926, end: 20140927

REACTIONS (10)
  - Decreased appetite [Recovered/Resolved]
  - Chills [Recovered/Resolved]
  - Cold sweat [Recovered/Resolved]
  - Dyspnoea [Recovered/Resolved]
  - Dysarthria [Recovered/Resolved]
  - Thirst [Recovered/Resolved]
  - Chest discomfort [Recovered/Resolved]
  - Nausea [Recovered/Resolved]
  - Asthenia [Recovered/Resolved]
  - Myalgia [Recovered/Resolved]

NARRATIVE: CASE EVENT DATE: 20140927
